FAERS Safety Report 7251500-0 (Version None)
Quarter: 2011Q1

REPORT INFORMATION
  Report Type: 
  Country: None (occurrence: None)
  Receive Date: 20110128
  Receipt Date: 20110127
  Transmission Date: 20110831
  Serious: Yes (Death, Hospitalization)
  Sender: FDA-Public Use
  Company Number: PHHO2010FR19821

PATIENT
  Sex: Male
  Weight: 64 kg

DRUGS (10)
  1. NEORAL [Suspect]
     Indication: RENAL TRANSPLANT
     Dosage: 150 MG / DAY
     Route: 048
     Dates: start: 20101230
  2. NEXIUM [Concomitant]
     Dosage: 20
     Route: 048
     Dates: start: 20100607
  3. CORTANCYL [Suspect]
     Indication: RENAL TRANSPLANT
     Dosage: 5 MG DAILY
     Route: 048
     Dates: start: 20100605, end: 20101230
  4. LASIX [Concomitant]
     Dosage: 10 MG
     Route: 048
     Dates: start: 20100712
  5. CELLCEPT [Suspect]
     Indication: RENAL TRANSPLANT
     Dosage: 1.5 G DAILY
     Route: 048
     Dates: start: 20100531, end: 20101230
  6. SOLU-MEDROL [Suspect]
     Indication: RENAL TRANSPLANT
     Dosage: 60 MG
     Route: 042
     Dates: start: 20100531, end: 20100531
  7. THYMOGLOBULIN [Suspect]
     Dosage: UNK
     Dates: start: 20100531, end: 20100604
  8. RAD 666 / RAD 001A [Suspect]
     Indication: RENAL TRANSPLANT
     Dosage: 2 MG DAILY
     Route: 048
     Dates: start: 20100605, end: 20101230
  9. AMLOC [Concomitant]
     Dosage: 5 MG
     Route: 048
     Dates: start: 20100601
  10. CARDENSIEL [Concomitant]
     Dosage: 10 MG
     Route: 048

REACTIONS (12)
  - HAEMODYNAMIC INSTABILITY [None]
  - PLEURISY [None]
  - RESPIRATORY DISTRESS [None]
  - DYSPNOEA [None]
  - THORACIC CAVITY DRAINAGE [None]
  - ANURIA [None]
  - SEPTIC SHOCK [None]
  - PNEUMONIA [None]
  - STAPHYLOCOCCAL INFECTION [None]
  - RENAL FAILURE [None]
  - MULTI-ORGAN FAILURE [None]
  - PNEUMOCYSTIS JIROVECI INFECTION [None]
